APPROVED DRUG PRODUCT: CITALOPRAM HYDROBROMIDE
Active Ingredient: CITALOPRAM HYDROBROMIDE
Strength: EQ 30MG BASE
Dosage Form/Route: CAPSULE;ORAL
Application: N215428 | Product #001
Applicant: ALMATICA PHARMA INC
Approved: Jan 31, 2022 | RLD: Yes | RS: Yes | Type: RX